FAERS Safety Report 21608962 (Version 3)
Quarter: 2025Q3

REPORT INFORMATION
  Report Type: Spontaneous
  Country: EU (occurrence: EU)
  Receive Date: 20221117
  Receipt Date: 20250808
  Transmission Date: 20251020
  Serious: Yes (Hospitalization, Other)
  Sender: AUROBINDO
  Company Number: EU-Zentiva-2022-ZT-011090

PATIENT
  Age: 18 Year
  Sex: Female

DRUGS (2)
  1. AMOXICILLIN\CLAVULANIC ACID [Suspect]
     Active Substance: AMOXICILLIN\CLAVULANIC ACID
     Indication: Tonsillitis bacterial
     Route: 065
  2. AMOXICILLIN\CLAVULANIC ACID [Suspect]
     Active Substance: AMOXICILLIN\CLAVULANIC ACID
     Indication: Epstein-Barr virus infection

REACTIONS (6)
  - Drug eruption [Recovered/Resolved]
  - Rash pustular [Unknown]
  - Pustule [Unknown]
  - Oral pustule [Unknown]
  - Rash [Unknown]
  - Off label use [Recovered/Resolved]
